FAERS Safety Report 12969615 (Version 1)
Quarter: 2016Q4

REPORT INFORMATION
  Report Type: Spontaneous
  Country: US (occurrence: US)
  Receive Date: 20161123
  Receipt Date: 20161123
  Transmission Date: 20170207
  Serious: No
  Sender: FDA-Public Use
  Company Number: US-IMPAX LABORATORIES, INC-2016-IPXL-01177

PATIENT
  Sex: Female
  Weight: 56.75 kg

DRUGS (1)
  1. DESMOPRESSIN ACETATE IR [Suspect]
     Active Substance: DESMOPRESSIN ACETATE
     Route: 065
     Dates: start: 2015

REACTIONS (3)
  - Blood sodium decreased [Not Recovered/Not Resolved]
  - Wrong technique in product usage process [Recovered/Resolved]
  - Fluid retention [Not Recovered/Not Resolved]

NARRATIVE: CASE EVENT DATE: 2016
